FAERS Safety Report 9727535 (Version 2)
Quarter: 2013Q4

REPORT INFORMATION
  Report Type: Spontaneous
  Country: ZA (occurrence: ZA)
  Receive Date: 20131203
  Receipt Date: 20131203
  Transmission Date: 20140711
  Serious: Yes (Hospitalization, Other)
  Sender: FDA-Public Use
  Company Number: ZA-BAYER-2013-133598

PATIENT
  Age: 50 Year
  Sex: Female

DRUGS (1)
  1. QLAIRA [Suspect]
     Indication: MENORRHAGIA
     Dosage: UNK
     Dates: start: 2013

REACTIONS (7)
  - Metrorrhagia [None]
  - Vaginal haemorrhage [None]
  - Hypomenorrhoea [None]
  - Abdominal distension [None]
  - Back disorder [None]
  - Arthropathy [None]
  - Spinal osteoarthritis [None]
